FAERS Safety Report 8189281-9 (Version None)
Quarter: 2012Q1

REPORT INFORMATION
  Report Type: 
  Country: None (occurrence: None)
  Receive Date: 20120307
  Receipt Date: 20120228
  Transmission Date: 20120608
  Serious: Yes (Disabling)
  Sender: FDA-Public Use
  Company Number: GB-ACCORD-012597

PATIENT
  Age: 91 Year
  Sex: Male
  Weight: 65 kg

DRUGS (8)
  1. DONEPEZIL HCL [Suspect]
     Indication: PRODUCT USED FOR UNKNOWN INDICATION
  2. ASPIRIN [Concomitant]
     Dates: start: 20120209, end: 20120216
  3. AMLODIPINE [Concomitant]
     Dates: start: 20111003, end: 20111128
  4. LANSOPRAZOLE [Concomitant]
     Dates: start: 20111003, end: 20120216
  5. TRIMETHOPRIM [Concomitant]
     Dates: start: 20120208, end: 20120213
  6. LISINOPRIL [Concomitant]
     Dates: start: 20111003, end: 20111128
  7. ACETAMINOPHEN AND CODEINE PHOSPHATE [Concomitant]
     Dates: start: 20111220
  8. POLYETHYLENE GLYCOL [Concomitant]
     Dates: start: 20111220

REACTIONS (3)
  - URINARY INCONTINENCE [None]
  - PARKINSONISM [None]
  - EXTRAPYRAMIDAL DISORDER [None]
